FAERS Safety Report 14725980 (Version 1)
Quarter: 2018Q2

REPORT INFORMATION
  Report Type: Spontaneous
  Country: FR (occurrence: FR)
  Receive Date: 20180406
  Receipt Date: 20180406
  Transmission Date: 20180711
  Serious: Yes (Other)
  Sender: FDA-Public Use
  Company Number: FR-MERCK KGAA-2045220

PATIENT
  Age: 43 Year
  Sex: Female
  Weight: 54 kg

DRUGS (1)
  1. NOVOTHYROX [Suspect]
     Active Substance: LEVOTHYROXINE SODIUM
     Indication: HYPOTHYROIDISM
     Route: 048
     Dates: start: 20170913, end: 20171108

REACTIONS (7)
  - Diffuse alopecia [Unknown]
  - Asthenia [Unknown]
  - Weight increased [Unknown]
  - Migraine with aura [Unknown]
  - Gastrointestinal disorder [Unknown]
  - Depression [Unknown]
  - Dry skin [Unknown]

NARRATIVE: CASE EVENT DATE: 20170916
